FAERS Safety Report 24087338 (Version 1)
Quarter: 2024Q3

REPORT INFORMATION
  Report Type: Report from Study
  Country: US (occurrence: None)
  Receive Date: 20240714
  Receipt Date: 20240714
  Transmission Date: 20241017
  Serious: Yes (Death)
  Sender: ASTRAZENECA
  Company Number: 2024A159109

PATIENT

DRUGS (1)
  1. FARXIGA [Suspect]
     Active Substance: DAPAGLIFLOZIN PROPANEDIOL
     Route: 048

REACTIONS (1)
  - Death [Fatal]
